FAERS Safety Report 17968504 (Version 1)
Quarter: 2020Q3

REPORT INFORMATION
  Report Type: Spontaneous
  Country: CN (occurrence: CN)
  Receive Date: 20200701
  Receipt Date: 20200701
  Transmission Date: 20201103
  Serious: Yes (Other)
  Sender: FDA-Public Use
  Company Number: CN-ROCHE-2572491

PATIENT
  Age: 70 Year
  Sex: Female

DRUGS (2)
  1. ZELBORAF [Suspect]
     Active Substance: VEMURAFENIB
     Indication: LUNG NEOPLASM MALIGNANT
     Route: 048
  2. ZELBORAF [Suspect]
     Active Substance: VEMURAFENIB
     Indication: GENE MUTATION

REACTIONS (7)
  - Arthralgia [Recovering/Resolving]
  - Intentional product use issue [Unknown]
  - Rash [Recovering/Resolving]
  - Off label use [Unknown]
  - Pain [Recovering/Resolving]
  - Neoplasm malignant [Recovering/Resolving]
  - Dry skin [Recovering/Resolving]
